FAERS Safety Report 6633838-0 (Version None)
Quarter: 2010Q1

REPORT INFORMATION
  Report Type: 
  Country: None (occurrence: None)
  Receive Date: 20100315
  Receipt Date: 20100310
  Transmission Date: 20100710
  Serious: Yes (Other)
  Sender: FDA-Public Use
  Company Number: DE-WYE-G05722210

PATIENT
  Sex: Female

DRUGS (2)
  1. TREVILOR [Suspect]
     Route: 048
     Dates: start: 20090101, end: 20100101
  2. DOXEPIN HCL [Suspect]
     Dosage: UNKNOWN DOSE REGIMEN FROM UNKNOWN DATE, DISCONTINUED IN EARLY 2010
     Route: 048

REACTIONS (1)
  - BONE MARROW FAILURE [None]
